FAERS Safety Report 8368114-1 (Version None)
Quarter: 2012Q2

REPORT INFORMATION
  Report Type: 
  Country: None (occurrence: None)
  Receive Date: 20120517
  Receipt Date: 20120509
  Transmission Date: 20120825
  Serious: Yes (Hospitalization, Other)
  Sender: FDA-Public Use
  Company Number: US-ABBOTT-12P-163-0906110-00

PATIENT
  Sex: Female
  Weight: 78.088 kg

DRUGS (17)
  1. ALPRAZOLAM [Concomitant]
     Indication: PRODUCT USED FOR UNKNOWN INDICATION
  2. NEXIUM [Concomitant]
     Indication: PRODUCT USED FOR UNKNOWN INDICATION
  3. TYLENOL ARTHRITIS [Concomitant]
     Indication: PRODUCT USED FOR UNKNOWN INDICATION
     Route: 048
  4. HUMIRA [Suspect]
     Indication: PSORIATIC ARTHROPATHY
     Route: 058
     Dates: start: 20111101, end: 20120101
  5. TRICOR [Concomitant]
     Indication: PRODUCT USED FOR UNKNOWN INDICATION
  6. LEVOXYL [Concomitant]
     Indication: PRODUCT USED FOR UNKNOWN INDICATION
  7. TRAMADOL HYDROCHLORIDE [Concomitant]
     Indication: PRODUCT USED FOR UNKNOWN INDICATION
  8. HORIZANT [Concomitant]
     Indication: RESTLESS LEGS SYNDROME
  9. ZOLPIDEM [Concomitant]
     Indication: PRODUCT USED FOR UNKNOWN INDICATION
  10. LIDOCAINE [Concomitant]
     Indication: PRODUCT USED FOR UNKNOWN INDICATION
  11. LYRICA [Concomitant]
     Indication: PRODUCT USED FOR UNKNOWN INDICATION
  12. TIZANIDINE [Concomitant]
     Indication: PRODUCT USED FOR UNKNOWN INDICATION
  13. HYDROXYZINE [Concomitant]
     Indication: PRODUCT USED FOR UNKNOWN INDICATION
  14. TACLONEX [Concomitant]
     Indication: PSORIASIS
     Route: 061
  15. HUMIRA [Suspect]
     Route: 058
     Dates: start: 20120212
  16. METHOTREXATE [Concomitant]
     Indication: PRODUCT USED FOR UNKNOWN INDICATION
     Dates: end: 20120201
  17. FLUOXETINE [Concomitant]
     Indication: PRODUCT USED FOR UNKNOWN INDICATION

REACTIONS (7)
  - BENIGN UTERINE NEOPLASM [None]
  - FEELING JITTERY [None]
  - STAPHYLOCOCCAL INFECTION [None]
  - PSORIASIS [None]
  - HEADACHE [None]
  - URINARY TRACT INFECTION [None]
  - NERVOUSNESS [None]
